FAERS Safety Report 14912441 (Version 2)
Quarter: 2018Q2

REPORT INFORMATION
  Report Type: Report from Study
  Country: US (occurrence: US)
  Receive Date: 20180518
  Receipt Date: 20180524
  Transmission Date: 20180711
  Serious: Yes (Hospitalization)
  Sender: FDA-Public Use
  Company Number: US-ROCHE-1713318

PATIENT
  Age: 63 Year
  Sex: Male
  Weight: 68.2 kg

DRUGS (12)
  1. ATEZOLIZUMAB. [Suspect]
     Active Substance: ATEZOLIZUMAB
     Indication: METASTATIC CARCINOMA OF THE BLADDER
     Dosage: DATE OF LAST DOSE PRIOR TO EVENT ONSET WAS ON 27/JAN/2016
     Route: 042
     Dates: start: 20160106
  2. MORPHINE [Concomitant]
     Active Substance: MORPHINE
     Route: 065
     Dates: start: 20150609, end: 20160323
  3. POLYETHYLENE GLYCOL [Concomitant]
     Active Substance: POLYETHYLENE GLYCOLS
     Route: 065
     Dates: start: 20150621, end: 20180103
  4. RO 5509554 (CSF-1R MAB) [Suspect]
     Active Substance: EMACTUZUMAB
     Indication: METASTATIC CARCINOMA OF THE BLADDER
     Dosage: DATE OF LAST DOSE (1000 MG) PRIOR TO EVENT ONSET WAS ON 27/JAN/2016
     Route: 042
     Dates: start: 20160106
  5. AMLODIPINE [Concomitant]
     Active Substance: AMLODIPINE BESYLATE
     Route: 065
     Dates: start: 20150609, end: 20160224
  6. CALCIUM CARBONATE. [Concomitant]
     Active Substance: CALCIUM CARBONATE
     Route: 065
     Dates: start: 20151202
  7. MAGNESIUM OXIDE. [Concomitant]
     Active Substance: MAGNESIUM OXIDE
     Route: 065
     Dates: start: 20150921
  8. DOCUSATE SODIUM. [Concomitant]
     Active Substance: DOCUSATE SODIUM
     Route: 065
     Dates: start: 20151111
  9. SIMVASTATIN. [Concomitant]
     Active Substance: SIMVASTATIN
     Route: 065
     Dates: start: 20150609, end: 20160224
  10. METFORMIN [Concomitant]
     Active Substance: METFORMIN HYDROCHLORIDE
     Route: 065
     Dates: start: 20161202
  11. SENNA [Concomitant]
     Active Substance: SENNA LEAF\SENNOSIDES\SENNOSIDES A AND B
     Route: 065
     Dates: start: 20150727, end: 20180111
  12. LISINOPRIL HIDROCLOROTIAZIDA [Concomitant]
     Active Substance: HYDROCHLOROTHIAZIDE\LISINOPRIL
     Dosage: 10-12.5 MG
     Route: 065
     Dates: start: 20150609, end: 20160415

REACTIONS (3)
  - Urinary tract infection [Recovered/Resolved]
  - Gastric haemorrhage [Recovered/Resolved]
  - Anaemia [Recovered/Resolved]

NARRATIVE: CASE EVENT DATE: 20160111
